FAERS Safety Report 9269996 (Version 1)
Quarter: 2013Q2

REPORT INFORMATION
  Report Type: Spontaneous
  Country: US (occurrence: US)
  Receive Date: 20130502
  Receipt Date: 20130502
  Transmission Date: 20140414
  Serious: Yes (Hospitalization, Other)
  Sender: FDA-Public Use
  Company Number: US-RB-053057-13

PATIENT
  Age: 30 Year
  Sex: Female

DRUGS (2)
  1. BUPRENORPHINE/NALOXONE UNSPECIFIED [Suspect]
     Indication: MEDICATION ERROR
     Dosage: DOSING DETAILS UNKNOWN
     Route: 060
     Dates: start: 20130415, end: 20130418
  2. DIAZEPAM [Suspect]
     Indication: ALCOHOL WITHDRAWAL SYNDROME
     Dosage: DOSING DETAILS UNKNOWN; DOWNWARD TITRATION
     Route: 065

REACTIONS (7)
  - Medication error [Recovered/Resolved]
  - Confusional state [Recovering/Resolving]
  - Fall [Recovering/Resolving]
  - Disorientation [Recovering/Resolving]
  - Vomiting [Recovering/Resolving]
  - Diarrhoea [Recovering/Resolving]
  - Pneumonia [Not Recovered/Not Resolved]
